FAERS Safety Report 20457281 (Version 3)
Quarter: 2022Q2

REPORT INFORMATION
  Report Type: Report from Study
  Country: AU (occurrence: AU)
  Receive Date: 20220210
  Receipt Date: 20220512
  Transmission Date: 20220721
  Serious: Yes (Hospitalization)
  Sender: FDA-Public Use
  Company Number: AU-SEATTLE GENETICS-2022SGN00811

PATIENT
  Age: 65 Year
  Sex: Female
  Weight: 75.7 kg

DRUGS (19)
  1. TUCATINIB [Suspect]
     Active Substance: TUCATINIB
     Indication: Breast cancer
     Dosage: 300 MG, BID
     Route: 048
     Dates: start: 20200507, end: 20220204
  2. CAPECITABINE [Suspect]
     Active Substance: CAPECITABINE
     Indication: Breast cancer
     Dosage: 750 MG/M2 BID ON DAYS 1-14 OF A 21-DAY CYCLE
     Route: 048
     Dates: start: 20200507, end: 20220204
  3. TRASTUZUMAB [Suspect]
     Active Substance: TRASTUZUMAB
     Indication: Breast cancer
     Dosage: 481 MG, Q3WEEKS
     Route: 058
     Dates: start: 20200507, end: 20220204
  4. BISOPROLOL [Concomitant]
     Active Substance: BISOPROLOL
     Indication: Prophylaxis
     Dosage: 10 MG, QD
     Route: 048
     Dates: start: 2015
  5. XGEVA [Concomitant]
     Active Substance: DENOSUMAB
     Indication: Metastases to bone
     Dosage: 120 MG, QMONTH
     Route: 058
     Dates: start: 2017
  6. MAGNESIUM [Concomitant]
     Active Substance: MAGNESIUM
     Indication: Supplementation therapy
     Dosage: UNK, QD
     Route: 048
     Dates: start: 2017
  7. IMODIUM [Concomitant]
     Active Substance: LOPERAMIDE HYDROCHLORIDE
     Indication: Diarrhoea
     Dosage: 2 MG, PRN
     Route: 048
     Dates: start: 20180910
  8. SYSTANE ULTRA [Concomitant]
     Active Substance: POLYETHYLENE GLYCOL 400\PROPYLENE GLYCOL
     Indication: Dry eye
     Dosage: UNK
     Dates: start: 20191029
  9. METHYLPREDNISOLONE ACEPONATE [Concomitant]
     Active Substance: METHYLPREDNISOLONE ACEPONATE
     Indication: Eczema
     Dosage: PRN
     Route: 061
     Dates: start: 20191224
  10. ACETAMINOPHEN [Concomitant]
     Active Substance: ACETAMINOPHEN
     Indication: Pain
     Dosage: 1000 MG, PRN
     Route: 048
     Dates: start: 20200524
  11. DAPAGLIFLOZIN [Concomitant]
     Active Substance: DAPAGLIFLOZIN
     Indication: Ejection fraction decreased
     Dosage: 10 MG, QD
     Route: 048
     Dates: start: 20201127
  12. XARELTO [Concomitant]
     Active Substance: RIVAROXABAN
     Indication: Thrombosis prophylaxis
     Dosage: 20 MG, QD
     Route: 048
     Dates: start: 20201228
  13. DIGOXIN [Concomitant]
     Active Substance: DIGOXIN
     Indication: Ejection fraction decreased
     Dosage: 62.5 ?G
     Route: 048
     Dates: start: 20211120
  14. PANADOL [Concomitant]
     Active Substance: ACETAMINOPHEN
     Indication: Influenza like illness
     Dosage: 1 G, PRN
     Dates: start: 20211123
  15. IVABRADINE HYDROCHLORIDE [Concomitant]
     Active Substance: IVABRADINE HYDROCHLORIDE
     Indication: Ejection fraction decreased
     Dosage: 7.5 MG, BID
     Route: 048
     Dates: start: 20220108
  16. SPIRONOLACTONE [Concomitant]
     Active Substance: SPIRONOLACTONE
     Indication: Prophylaxis
     Dosage: 25 MG, QD
     Route: 048
     Dates: start: 20210827
  17. FUROSEMIDE [Concomitant]
     Active Substance: FUROSEMIDE
     Indication: Cardiomyopathy
     Dosage: 40 MG
     Route: 048
     Dates: start: 20211222
  18. CHOLECALCIFEROL [Concomitant]
     Active Substance: CHOLECALCIFEROL
     Indication: Vitamin supplementation
     Dosage: 4000 MG, QD
     Route: 048
     Dates: start: 2017
  19. SODIUM CHLORIDE [Concomitant]
     Active Substance: SODIUM CHLORIDE
     Indication: Bronchiectasis
     Dosage: UNK
     Dates: start: 20181116

REACTIONS (1)
  - Cardiac failure [Recovering/Resolving]

NARRATIVE: CASE EVENT DATE: 20220204
